FAERS Safety Report 4303370-8 (Version None)
Quarter: 2004Q1

REPORT INFORMATION
  Report Type: 
  Country: None (occurrence: None)
  Receive Date: 20040223
  Receipt Date: 20020610
  Transmission Date: 20041129
  Serious: Yes (Hospitalization)
  Sender: FDA-Public Use
  Company Number: F01200200159

PATIENT
  Age: 60 Year
  Sex: Male

DRUGS (1)
  1. XATRAL - (ALFUZOSIN) -TABLET PR- 10 MG [Suspect]
     Indication: BENIGN PROSTATIC HYPERPLASIA
     Dosage: 10 MG OD ORAL
     Route: 048
     Dates: start: 20011106, end: 20020608

REACTIONS (3)
  - BLADDER NEOPLASM [None]
  - TRANSITIONAL CELL CARCINOMA [None]
  - URINARY RETENTION [None]
